FAERS Safety Report 7187289-3 (Version None)
Quarter: 2010Q4

REPORT INFORMATION
  Report Type: 
  Country: None (occurrence: None)
  Receive Date: 20101222
  Receipt Date: 20101217
  Transmission Date: 20110411
  Serious: Yes (Other)
  Sender: FDA-Public Use
  Company Number: US-ABBOTT-10P-163-0687575-00

PATIENT
  Sex: Female
  Weight: 55.388 kg

DRUGS (4)
  1. LUPRON DEPOT-PED [Suspect]
     Indication: PRECOCIOUS PUBERTY
     Dates: start: 20100901
  2. LUPRON DEPOT-PED [Suspect]
  3. UNKNOWN PAIN MEDICATION [Concomitant]
     Indication: HEADACHE
     Dosage: AS NEEDED
  4. MOTRIN [Concomitant]
     Indication: HEADACHE

REACTIONS (5)
  - DIZZINESS [None]
  - DYSACUSIS [None]
  - DYSPNOEA [None]
  - HEADACHE [None]
  - HYPERACUSIS [None]
